FAERS Safety Report 19244047 (Version 1)
Quarter: 2021Q2

REPORT INFORMATION
  Report Type: Spontaneous
  Country: US (occurrence: US)
  Receive Date: 20210512
  Receipt Date: 20210512
  Transmission Date: 20210717
  Serious: Yes (Other)
  Sender: FDA-Public Use
  Company Number: US-NOVEN PHARMACEUTICALS, INC.-2021-NOV-US003375

PATIENT
  Age: 7 Year
  Sex: Male
  Weight: 24.22 kg

DRUGS (1)
  1. DAYTRANA [Suspect]
     Active Substance: METHYLPHENIDATE
     Indication: ATTENTION DEFICIT HYPERACTIVITY DISORDER
     Dosage: 15MG/ 9 HOURS, 1 PATCH DAILY
     Route: 062
     Dates: start: 2019

REACTIONS (7)
  - No adverse event [Unknown]
  - Device breakage [Not Recovered/Not Resolved]
  - Device difficult to use [Recovered/Resolved]
  - Device adhesion issue [Not Recovered/Not Resolved]
  - Product quality issue [Not Recovered/Not Resolved]
  - Accidental exposure to product [Recovered/Resolved]
  - Product administration error [Not Recovered/Not Resolved]

NARRATIVE: CASE EVENT DATE: 202101
